FAERS Safety Report 4627415-0 (Version None)
Quarter: 2005Q1

REPORT INFORMATION
  Report Type: 
  Country: None (occurrence: None)
  Receive Date: 20050331
  Receipt Date: 20050323
  Transmission Date: 20050727
  Serious: Yes (Other)
  Sender: FDA-Public Use
  Company Number: US014975

PATIENT

DRUGS (3)
  1. GABITRIL [Suspect]
     Indication: POST-TRAUMATIC STRESS DISORDER
     Dosage: 4 MG QAM ORAL
     Route: 048
  2. GABITRIL [Suspect]
     Indication: POST-TRAUMATIC STRESS DISORDER
     Dosage: 12 MG QHS ORAL
     Route: 048
  3. GABITRIL [Suspect]
     Indication: POST-TRAUMATIC STRESS DISORDER
     Dosage: 16 MG QHS ORAL
     Route: 048

REACTIONS (1)
  - GRAND MAL CONVULSION [None]
